FAERS Safety Report 16838221 (Version 2)
Quarter: 2019Q4

REPORT INFORMATION
  Report Type: Report from Study
  Country: US (occurrence: US)
  Receive Date: 20190923
  Receipt Date: 20191001
  Transmission Date: 20200122
  Serious: Yes (Hospitalization)
  Sender: FDA-Public Use
  Company Number: US-EISAI MEDICAL RESEARCH-EC-2019-059374

PATIENT
  Age: 78 Year
  Sex: Male
  Weight: 73 kg

DRUGS (14)
  1. AMOXICILLIN. [Concomitant]
     Active Substance: AMOXICILLIN
  2. OXYBUTYNIN. [Concomitant]
     Active Substance: OXYBUTYNIN CHLORIDE
  3. AFINITOR [Concomitant]
     Active Substance: EVEROLIMUS
  4. ALLOPURINOL. [Concomitant]
     Active Substance: ALLOPURINOL
  5. VITAMIN B-1 [Concomitant]
     Active Substance: THIAMINE HYDROCHLORIDE
  6. AMOXICILLIN-CLAVULANATE [Concomitant]
     Active Substance: AMOXICILLIN\CLAVULANIC ACID
  7. ONDANSETRON [Concomitant]
     Active Substance: ONDANSETRON
  8. LENVIMA [Suspect]
     Active Substance: LENVATINIB
     Indication: RENAL CANCER
     Route: 048
     Dates: start: 20190710, end: 20190819
  9. MEGESTROL ACETATE. [Concomitant]
     Active Substance: MEGESTROL ACETATE
  10. DULCOEASE [Concomitant]
     Active Substance: DOCUSATE SODIUM
  11. OXYCODONE [Concomitant]
     Active Substance: OXYCODONE
  12. NEXAVAR [Concomitant]
     Active Substance: SORAFENIB
  13. FOLIC ACID. [Concomitant]
     Active Substance: FOLIC ACID
  14. VITAMIN D3 [Concomitant]
     Active Substance: CHOLECALCIFEROL

REACTIONS (10)
  - Feeding disorder [Unknown]
  - Limb discomfort [Unknown]
  - Dysphonia [Unknown]
  - Gait disturbance [Unknown]
  - Speech disorder [Recovering/Resolving]
  - Weight decreased [Unknown]
  - Asthenia [Unknown]
  - Diarrhoea [Recovered/Resolved]
  - Dehydration [Unknown]
  - Blood pressure increased [Not Recovered/Not Resolved]

NARRATIVE: CASE EVENT DATE: 2019
